FAERS Safety Report 15493732 (Version 1)
Quarter: 2018Q4

REPORT INFORMATION
  Report Type: Spontaneous
  Country: FR (occurrence: FR)
  Receive Date: 20181012
  Receipt Date: 20181012
  Transmission Date: 20190205
  Serious: Yes (Other)
  Sender: FDA-Public Use
  Company Number: FR-009507513-1810FRA003512

PATIENT
  Sex: Female

DRUGS (2)
  1. DESOGESTREL (+) ETHINYL ESTRADIOL [Suspect]
     Active Substance: DESOGESTREL\ETHINYL ESTRADIOL
     Indication: CONTRACEPTION
     Dosage: UNK, UNK
     Route: 048
     Dates: start: 200207
  2. LAMISIL [Suspect]
     Active Substance: TERBINAFINE HYDROCHLORIDE
     Indication: DERMATOPHYTOSIS OF NAIL
     Dosage: 250 MG, QD
     Route: 048
     Dates: start: 20021023, end: 20021121

REACTIONS (4)
  - Myalgia [Recovered/Resolved]
  - Arthritis [Recovered/Resolved]
  - Angioedema [Recovered/Resolved]
  - Face oedema [Recovered/Resolved]

NARRATIVE: CASE EVENT DATE: 20021120
